FAERS Safety Report 9004315 (Version 1)
Quarter: 2013Q1

REPORT INFORMATION
  Report Type: Spontaneous
  Country: US (occurrence: None)
  Receive Date: 20130104
  Receipt Date: 20130104
  Transmission Date: 20140127
  Serious: Yes (Life-Threatening, Hospitalization, Disabling)
  Sender: FDA-Public Use
  Company Number: None

PATIENT
  Age: 90 Year
  Sex: Female
  Weight: 73.03 kg

DRUGS (1)
  1. PLAVIX [Suspect]
     Indication: STENT PLACEMENT
     Dosage: 1 PILL DAILY ORAL
     Route: 048
     Dates: start: 20121018, end: 20121030

REACTIONS (4)
  - Feeling abnormal [None]
  - Rectal haemorrhage [None]
  - Faeces hard [None]
  - Dyspnoea [None]
